FAERS Safety Report 7275589 (Version 6)
Quarter: 2014Q1

REPORT INFORMATION
  Report Type: Spontaneous
  Country: US (occurrence: US)
  Receive Date: 20100211
  Receipt Date: 20140114
  Transmission Date: 20141002
  Serious: Yes (Other)
  Sender: FDA-Public Use
  Company Number: US-BAYER-201013267NA

PATIENT
  Age: 25 Year
  Sex: Female
  Weight: 49.09 kg

DRUGS (7)
  1. YASMIN [Suspect]
     Indication: PRODUCT USED FOR UNKNOWN INDICATION
     Dosage: UNK UNK, QD
     Route: 048
     Dates: start: 2000
  2. YAZ [Suspect]
     Indication: PRODUCT USED FOR UNKNOWN INDICATION
     Route: 048
     Dates: start: 2000
  3. CLINDAMYCIN PHOSPHATE [Concomitant]
     Route: 061
  4. TRETINOIN [Concomitant]
     Route: 061
  5. MINOCYCLINE [Concomitant]
     Dosage: 90 MG, DAILY
     Route: 048
  6. CITALOPRAM [Concomitant]
     Dosage: 20 MG/24HR, UNK
     Route: 048
  7. DOXYCYCLINE [Concomitant]
     Dosage: 100 MG, TID
     Route: 048

REACTIONS (2)
  - Gallbladder disorder [Unknown]
  - Cholecystitis [None]
